FAERS Safety Report 15432363 (Version 1)
Quarter: 2018Q3

REPORT INFORMATION
  Report Type: Spontaneous
  Country: US (occurrence: US)
  Receive Date: 20180926
  Receipt Date: 20180926
  Transmission Date: 20181010
  Serious: No
  Sender: FDA-Public Use
  Company Number: US-GLAXOSMITHKLINE-US2018171020

PATIENT
  Sex: Female

DRUGS (1)
  1. NUCALA [Suspect]
     Active Substance: MEPOLIZUMAB
     Indication: PRODUCT USED FOR UNKNOWN INDICATION
     Dosage: UNK
     Dates: start: 201711

REACTIONS (6)
  - Hypersensitivity [Unknown]
  - Pruritus [Recovered/Resolved]
  - Oral pruritus [Recovered/Resolved]
  - Erythema [Recovering/Resolving]
  - Throat irritation [Recovered/Resolved]
  - Ear pruritus [Recovered/Resolved]
